FAERS Safety Report 5199791-4 (Version None)
Quarter: 2007Q1

REPORT INFORMATION
  Report Type: 
  Country: None (occurrence: None)
  Receive Date: 20070105
  Receipt Date: 20061025
  Transmission Date: 20070707
  Serious: No
  Sender: FDA-Public Use
  Company Number: US-GLAXOSMITHKLINE-A0624706A

PATIENT

DRUGS (1)
  1. TAGAMET HB 200 [Suspect]
     Dates: start: 20061023

REACTIONS (2)
  - DRY EYE [None]
  - DRY MOUTH [None]
